FAERS Safety Report 6130606-3 (Version None)
Quarter: 2009Q1

REPORT INFORMATION
  Report Type: 
  Country: None (occurrence: None)
  Receive Date: 20090325
  Receipt Date: 20090315
  Transmission Date: 20090719
  Serious: Yes (Other)
  Sender: FDA-Public Use
  Company Number: PHHY2009CN10313

PATIENT

DRUGS (1)
  1. GLEEVEC [Suspect]
     Dosage: UNK
     Route: 048

REACTIONS (2)
  - COAGULOPATHY [None]
  - THYROID DISORDER [None]
